FAERS Safety Report 11812618 (Version 1)
Quarter: 2015Q4

REPORT INFORMATION
  Report Type: Spontaneous
  Country: FR (occurrence: FR)
  Receive Date: 20151208
  Receipt Date: 20151208
  Transmission Date: 20160305
  Serious: Yes (Hospitalization)
  Sender: FDA-Public Use
  Company Number: FR-ASTRAZENECA-2015SF20544

PATIENT
  Age: 18496 Day
  Sex: Male

DRUGS (17)
  1. TAHOR [Concomitant]
     Active Substance: ATORVASTATIN CALCIUM
  2. APIDRA [Concomitant]
     Active Substance: INSULIN GLULISINE
  3. FLUOROURACIL. [Suspect]
     Active Substance: FLUOROURACIL
     Route: 065
  4. CALCIPARINE [Concomitant]
     Active Substance: HEPARIN CALCIUM
  5. FUMAFER [Concomitant]
     Active Substance: FERROUS FUMARATE
  6. INEXIUM [Suspect]
     Active Substance: ESOMEPRAZOLE
     Route: 048
  7. CIPROFLOXACIN. [Concomitant]
     Active Substance: CIPROFLOXACIN
  8. XANAX [Concomitant]
     Active Substance: ALPRAZOLAM
  9. PHOSPHONEUROS [Concomitant]
     Active Substance: CALCIUM PHOSPHATE, DIBASIC, ANHYDROUS\MAGNESIUM GLYCEROPHOSPHATE\PHOSPHORIC ACID\SODIUM PHOSPHATE, DIBASIC
  10. DEPAKINE CHRONO [Concomitant]
     Active Substance: VALPROATE SODIUM
     Dosage: 500 MG SR
  11. ATRIPLA [Suspect]
     Active Substance: EFAVIRENZ\EMTRICITABINE\TENOFOVIR DISOPROXIL FUMARATE
     Indication: HIV INFECTION
     Route: 048
     Dates: end: 20151106
  12. KARDEGIC [Concomitant]
     Active Substance: ASPIRIN LYSINE
  13. METOPROLOL [Concomitant]
     Active Substance: METOPROLOL
  14. SILVER NITRATE. [Concomitant]
     Active Substance: SILVER NITRATE
  15. EFFEXOR [Concomitant]
     Active Substance: VENLAFAXINE HYDROCHLORIDE
  16. EXACYL [Concomitant]
     Active Substance: TRANEXAMIC ACID
  17. IMOVANE [Concomitant]
     Active Substance: ZOPICLONE

REACTIONS (1)
  - Acute kidney injury [Not Recovered/Not Resolved]

NARRATIVE: CASE EVENT DATE: 20151030
